FAERS Safety Report 20077195 (Version 3)
Quarter: 2022Q1

REPORT INFORMATION
  Report Type: Report from Study
  Country: DE (occurrence: DE)
  Receive Date: 20211116
  Receipt Date: 20220121
  Transmission Date: 20220423
  Serious: Yes (Death)
  Sender: FDA-Public Use
  Company Number: DE-CELGENE-DEU-20211103801

PATIENT
  Age: 65 Year
  Sex: Male

DRUGS (3)
  1. ENASIDENIB [Suspect]
     Active Substance: ENASIDENIB
     Indication: Acute myeloid leukaemia
     Route: 048
     Dates: start: 20211021, end: 20211109
  2. CYTARABINE [Suspect]
     Active Substance: CYTARABINE
     Indication: Acute myeloid leukaemia
     Route: 065
     Dates: start: 20211021, end: 20211027
  3. DAUNORUBICIN [Suspect]
     Active Substance: DAUNORUBICIN
     Indication: Acute myeloid leukaemia
     Route: 065
     Dates: start: 20211021, end: 20211023

REACTIONS (1)
  - Aortic aneurysm rupture [Fatal]

NARRATIVE: CASE EVENT DATE: 20211109
